FAERS Safety Report 11097045 (Version 1)
Quarter: 2015Q2

REPORT INFORMATION
  Report Type: Spontaneous
  Country: NZ (occurrence: NZ)
  Receive Date: 20150507
  Receipt Date: 20150507
  Transmission Date: 20150821
  Serious: Yes (Other)
  Sender: FDA-Public Use
  Company Number: NZ-ELI_LILLY_AND_COMPANY-NZ201504010784

PATIENT
  Age: 25 Year
  Sex: Male

DRUGS (3)
  1. BENZATROPINE [Concomitant]
     Active Substance: BENZTROPINE
     Dosage: 2.5MG, DAILY
     Route: 048
     Dates: start: 20140405
  2. ZYPREXA RELPREVV [Suspect]
     Active Substance: OLANZAPINE PAMOATE
     Indication: MENTAL DISORDER
     Dosage: 300MG, UNK
     Route: 030
     Dates: start: 20140502
  3. FLUOXETINE [Concomitant]
     Active Substance: FLUOXETINE\FLUOXETINE HYDROCHLORIDE
     Dosage: 40MG,DAILY
     Route: 048
     Dates: start: 20140420

REACTIONS (1)
  - Injection site abscess [Recovered/Resolved]
